FAERS Safety Report 18857566 (Version 1)
Quarter: 2021Q1

REPORT INFORMATION
  Report Type: Spontaneous
  Country: AU (occurrence: AU)
  Receive Date: 20210208
  Receipt Date: 20210208
  Transmission Date: 20210420
  Serious: Yes (Other)
  Sender: FDA-Public Use
  Company Number: AU-SA-2021SA037548

PATIENT
  Age: 31 Year
  Sex: Female

DRUGS (2)
  1. DUPIXENT [Suspect]
     Active Substance: DUPILUMAB
  2. METHOTREXATE. [Suspect]
     Active Substance: METHOTREXATE

REACTIONS (4)
  - Abortion spontaneous [Unknown]
  - Near death experience [Unknown]
  - Inflammation [Unknown]
  - Exposure during pregnancy [Unknown]
